FAERS Safety Report 21099259 (Version 1)
Quarter: 2022Q3

REPORT INFORMATION
  Report Type: Spontaneous
  Country: US (occurrence: US)
  Receive Date: 20220719
  Receipt Date: 20220719
  Transmission Date: 20221027
  Serious: Yes (Death)
  Sender: FDA-Public Use
  Company Number: US-AVEO ONCOLOGY-2022-AVEO-US000276

PATIENT

DRUGS (24)
  1. FOTIVDA [Suspect]
     Active Substance: TIVOZANIB HYDROCHLORIDE
     Indication: Renal cell carcinoma
     Dosage: 1.34 MG, DAILY FOR 21 DAYS WITH 7 DAYS OFF (28-DAY CYCLE)
     Route: 048
     Dates: start: 20211014
  2. ACETAMINOPHEN [Concomitant]
     Active Substance: ACETAMINOPHEN
  3. ALBUTEROL [Concomitant]
     Active Substance: ALBUTEROL
  4. ALUMINUM [Concomitant]
     Active Substance: ALUMINUM
  5. ASPIRIN [Concomitant]
     Active Substance: ASPIRIN
  6. BREO ELLIPTA [Concomitant]
     Active Substance: FLUTICASONE FUROATE\VILANTEROL TRIFENATATE
  7. CATHFLO ACTIVASE [Concomitant]
     Active Substance: ALTEPLASE
  8. CLONIDINE [Concomitant]
     Active Substance: CLONIDINE
  9. FENOFIBRATE [Concomitant]
     Active Substance: FENOFIBRATE
  10. FLUTICASONE [Concomitant]
     Active Substance: FLUTICASONE
  11. FUROSEMIDE [Concomitant]
     Active Substance: FUROSEMIDE
  12. HEPARIN [Concomitant]
     Active Substance: HEPARIN SODIUM
  13. HUMALOG [Concomitant]
     Active Substance: INSULIN LISPRO
  14. INSULIN NOS [Concomitant]
     Active Substance: INSULIN NOS
  15. LEVEMIR [Concomitant]
     Active Substance: INSULIN DETEMIR
  16. LIDOCAINE\PRILOCAINE [Concomitant]
     Active Substance: LIDOCAINE\PRILOCAINE
  17. LOSARTAN [Concomitant]
     Active Substance: LOSARTAN
  18. METOPROLOL [Concomitant]
     Active Substance: METOPROLOL
  19. MIDODRINE HYDROCHLORIDE [Concomitant]
     Active Substance: MIDODRINE HYDROCHLORIDE
  20. MOMETASONE FUROATE [Concomitant]
     Active Substance: MOMETASONE FUROATE
  21. MINERALS\VITAMINS [Concomitant]
     Active Substance: MINERALS\VITAMINS
  22. NIVOLUMAB [Concomitant]
     Active Substance: NIVOLUMAB
  23. OMEPRAZOLE [Concomitant]
     Active Substance: OMEPRAZOLE
  24. ROPINIROLE [Concomitant]
     Active Substance: ROPINIROLE

REACTIONS (1)
  - Death [Fatal]
